FAERS Safety Report 9238461 (Version 1)
Quarter: 2013Q2

REPORT INFORMATION
  Report Type: Spontaneous
  Country: US (occurrence: None)
  Receive Date: 20130416
  Receipt Date: 20130416
  Transmission Date: 20140414
  Serious: Yes (Other)
  Sender: FDA-Public Use
  Company Number: ACO_35400_2013

PATIENT
  Age: 65 Year
  Sex: Female

DRUGS (1)
  1. AMPYRA [Suspect]
     Indication: PRODUCT USED FOR UNKNOWN INDICATION
     Dates: start: 20120224

REACTIONS (4)
  - Ankle fracture [None]
  - Fall [None]
  - Mobility decreased [None]
  - Activities of daily living impaired [None]
